FAERS Safety Report 25690068 (Version 1)
Quarter: 2025Q3

REPORT INFORMATION
  Report Type: Spontaneous
  Country: US (occurrence: US)
  Receive Date: 20250818
  Receipt Date: 20250818
  Transmission Date: 20251021
  Serious: Yes (Other)
  Sender: PFIZER
  Company Number: US-PFIZER INC-PV202500098977

PATIENT
  Age: 62 Year
  Sex: Female

DRUGS (1)
  1. LINEZOLID [Suspect]
     Active Substance: LINEZOLID
     Dosage: 600MG PO DAILY
     Route: 048

REACTIONS (2)
  - Thrombocytopenia [Unknown]
  - Off label use [Unknown]
